FAERS Safety Report 8506279-9 (Version None)
Quarter: 2012Q3

REPORT INFORMATION
  Report Type: 
  Country: None (occurrence: None)
  Receive Date: 20120702
  Receipt Date: 20120619
  Transmission Date: 20120928
  Serious: Yes (Other)
  Sender: FDA-Public Use
  Company Number: DSA_58064_2012

PATIENT

DRUGS (4)
  1. LEUCOVORIN CALCIUM [Suspect]
     Indication: COLORECTAL CANCER
     Dosage: (200 MG/M2 INTRAVENOUS (NOT OTHERWISE SPECIFIED)) COLORECTAL CANCER
     Route: 042
  2. FLUOROURACIL [Suspect]
     Indication: COLORECTAL CANCER
     Dosage: (400 MG/M2  INTRAVENOUS BOLUS) (600 MG/M2 INTRAVENOUS BOLUS)
     Route: 042
  3. OXALIPLATIN [Suspect]
     Indication: COLORECTAL CANCER
     Dosage: (85 MG/M2 INTRAVENOUS (NOT OTHERWISE SPECIFIED))
     Route: 042
  4. BEVACIZUMAB [Suspect]
     Indication: COLORECTAL CANCER
     Dosage: (5 MG/KG (EVERY OTHER WEEK) INTRAVENOUS (NOT OTHERWISE SPECIFIED))
     Route: 042

REACTIONS (1)
  - NEUTROPENIA [None]
